FAERS Safety Report 16077553 (Version 1)
Quarter: 2019Q1

REPORT INFORMATION
  Report Type: Spontaneous
  Country: US (occurrence: US)
  Receive Date: 20190214
  Receipt Date: 20190214
  Transmission Date: 20190418
  Serious: No
  Sender: FDA-Public Use
  Company Number: None

PATIENT
  Age: 82 Year
  Sex: Male

DRUGS (1)
  1. ODOMZO [Suspect]
     Active Substance: SONIDEGIB
     Indication: BASAL CELL CARCINOMA
     Dosage: ?          OTHER DOSE:1 CAPSULE;?
     Route: 048
     Dates: start: 201809

REACTIONS (4)
  - Dizziness [None]
  - Fatigue [None]
  - Heart rate decreased [None]
  - Hypotension [None]
